FAERS Safety Report 14298219 (Version 1)
Quarter: 2017Q4

REPORT INFORMATION
  Report Type: Spontaneous
  Country: US (occurrence: US)
  Receive Date: 20171218
  Receipt Date: 20171218
  Transmission Date: 20180321
  Serious: No
  Sender: FDA-Public Use
  Company Number: US-BIOCOMPATIBLES UK LTD-2017BTG01400

PATIENT

DRUGS (1)
  1. VARITHENA [Suspect]
     Active Substance: POLIDOCANOL
     Indication: PRODUCT USED FOR UNKNOWN INDICATION

REACTIONS (2)
  - Drug administration error [Unknown]
  - Deep vein thrombosis [Unknown]
